FAERS Safety Report 7290093-9 (Version None)
Quarter: 2011Q1

REPORT INFORMATION
  Report Type: 
  Country: None (occurrence: None)
  Receive Date: 20110202
  Receipt Date: 20110120
  Transmission Date: 20110831
  Serious: Yes (Death, Disabling, Other)
  Sender: FDA-Public Use
  Company Number: 2011MA000736

PATIENT
  Sex: Female

DRUGS (1)
  1. METOCLOPRAMIDE [Suspect]
     Indication: DIABETIC GASTROPARESIS
     Dosage: PO
     Route: 048

REACTIONS (7)
  - MULTIPLE INJURIES [None]
  - NERVOUS SYSTEM DISORDER [None]
  - INCORRECT DRUG ADMINISTRATION DURATION [None]
  - UNEVALUABLE EVENT [None]
  - MOVEMENT DISORDER [None]
  - TARDIVE DYSKINESIA [None]
  - ECONOMIC PROBLEM [None]
